FAERS Safety Report 8517705-3 (Version None)
Quarter: 2012Q3

REPORT INFORMATION
  Report Type: 
  Country: None (occurrence: None)
  Receive Date: 20120712
  Receipt Date: 20120712
  Transmission Date: 20120928
  Serious: Yes (Other)
  Sender: FDA-Public Use
  Company Number: None

PATIENT
  Sex: Female

DRUGS (1)
  1. SOLODYN [Suspect]
     Indication: ACNE
     Dosage: 65 MG QD

REACTIONS (3)
  - HYPERSENSITIVITY [None]
  - ERYTHEMA [None]
  - PRURITUS [None]
